FAERS Safety Report 20316905 (Version 1)
Quarter: 2022Q1

REPORT INFORMATION
  Report Type: Spontaneous
  Country: US (occurrence: US)
  Receive Date: 20220110
  Receipt Date: 20220110
  Transmission Date: 20220423
  Serious: No
  Sender: FDA-Public Use
  Company Number: US-drreddys-SPO/USA/22/0145670

PATIENT
  Age: 24 Year
  Sex: Male

DRUGS (2)
  1. ZENATANE [Suspect]
     Active Substance: ISOTRETINOIN
     Indication: Product used for unknown indication
     Dosage: RMA ISSUE DATE: 31 AUGUST 2021 12:12:12 PM, 27 OCTOBER 2021 10:15:52 AM, 01 DECEMBER 2021 01:22:59 P
  2. ISOTRETINOIN [Suspect]
     Active Substance: ISOTRETINOIN
     Indication: Product used for unknown indication
     Dosage: RMA ISSUE DATE: 21 SEPTEMBER 2021 09:40:06 AM, 22 SEPTEMBER 2021 12:32:16 PM

REACTIONS (1)
  - Gastrointestinal disorder [Unknown]
